FAERS Safety Report 6637020-2 (Version None)
Quarter: 2010Q1

REPORT INFORMATION
  Report Type: 
  Country: None (occurrence: None)
  Receive Date: 20100301
  Receipt Date: 20091104
  Transmission Date: 20100710
  Serious: Yes (Other)
  Sender: FDA-Public Use
  Company Number: WAES 0911USA02206

PATIENT
  Age: 50 Year
  Sex: Female

DRUGS (2)
  1. INJ IVEMEND UNK [Suspect]
     Indication: CHEMOTHERAPY
     Dosage: 115 MG/1X/IV
     Route: 042
  2. INJ IVEMEND UNK [Suspect]
     Indication: PROPHYLAXIS
     Dosage: 115 MG/1X/IV
     Route: 042

REACTIONS (1)
  - HYPERSENSITIVITY [None]
